FAERS Safety Report 18904430 (Version 1)
Quarter: 2021Q1

REPORT INFORMATION
  Report Type: Spontaneous
  Country: US (occurrence: US)
  Receive Date: 20210217
  Receipt Date: 20210217
  Transmission Date: 20210420
  Serious: No
  Sender: FDA-Public Use
  Company Number: None

PATIENT
  Age: 79 Year
  Sex: Female

DRUGS (8)
  1. DULOXETINE DR 20 MG [Concomitant]
  2. ALLOPURINOL 100 MG [Concomitant]
     Active Substance: ALLOPURINOL
  3. AMLODIPINE 10 MG [Concomitant]
     Active Substance: AMLODIPINE BESYLATE
  4. XERALTO 10 MG [Concomitant]
  5. SUTENT [Suspect]
     Active Substance: SUNITINIB MALATE
     Indication: GASTROINTESTINAL STROMAL TUMOUR
     Route: 048
     Dates: start: 20191016, end: 20210211
  6. LIPITOR 10 MG [Concomitant]
  7. FAMOTIDINE 10 MG [Concomitant]
  8. LORAZEPAM 0.5 MG [Concomitant]
     Active Substance: LORAZEPAM

REACTIONS (1)
  - Drug ineffective [None]

NARRATIVE: CASE EVENT DATE: 20210211
